FAERS Safety Report 4819523-6 (Version None)
Quarter: 2005Q4

REPORT INFORMATION
  Report Type: 
  Country: None (occurrence: None)
  Receive Date: 20051031
  Receipt Date: 20050902
  Transmission Date: 20060501
  Serious: No
  Sender: FDA-Public Use
  Company Number: CLOF-10097

PATIENT
  Age: 16 Year
  Sex: Male

DRUGS (1)
  1. CLOFARABINE [Suspect]
     Indication: MYELOID LEUKAEMIA
     Dosage: 52 MG/M2 QD X 5 IV
     Route: 042
     Dates: start: 20050221, end: 20050225

REACTIONS (1)
  - CHILLS [None]
